FAERS Safety Report 24719835 (Version 1)
Quarter: 2024Q4

REPORT INFORMATION
  Report Type: Spontaneous
  Country: CH (occurrence: CH)
  Receive Date: 20241211
  Receipt Date: 20241211
  Transmission Date: 20250114
  Serious: Yes (Hospitalization)
  Sender: ROCHE
  Company Number: None

PATIENT
  Age: 74 Year
  Sex: Female
  Weight: 59.9 kg

DRUGS (3)
  1. ACTEMRA [Suspect]
     Active Substance: TOCILIZUMAB
     Indication: Polymyalgia rheumatica
     Dosage: PAUSIERT BEI NEUTROPENIE
     Route: 058
     Dates: start: 201606, end: 201610
  2. ACTEMRA [Suspect]
     Active Substance: TOCILIZUMAB
     Dosage: FEHLENDES KLINISCHES ANSPRECHEN
     Route: 058
     Dates: start: 20230327, end: 20230523
  3. ACTEMRA [Suspect]
     Active Substance: TOCILIZUMAB
     Dosage: PAUSIERT BEI NEUTROPENIE
     Route: 058
     Dates: start: 202403, end: 20240813

REACTIONS (4)
  - Pneumonia bacterial [Recovered/Resolved]
  - Infection [Recovered/Resolved]
  - Neutropenia [Recovering/Resolving]
  - Unmasking of previously unidentified disease [Not Recovered/Not Resolved]

NARRATIVE: CASE EVENT DATE: 20160601
